FAERS Safety Report 11562255 (Version 1)
Quarter: 2015Q3

REPORT INFORMATION
  Report Type: Spontaneous
  Country: US (occurrence: US)
  Receive Date: 20150916
  Receipt Date: 20150916
  Transmission Date: 20151125
  Serious: No
  Sender: FDA-Public Use
  Company Number: US-ELI_LILLY_AND_COMPANY-US200812001069

PATIENT
  Age: 75 Year
  Sex: Female

DRUGS (4)
  1. TYLENOL /USA/ [Concomitant]
  2. TOPAMAX [Concomitant]
     Active Substance: TOPIRAMATE
  3. FORTEO [Suspect]
     Active Substance: TERIPARATIDE
     Indication: OSTEOPOROSIS
     Dosage: 20 UG, DAILY (1/D)
     Dates: start: 200806
  4. DILANTIN [Concomitant]
     Active Substance: PHENYTOIN

REACTIONS (2)
  - Hypoaesthesia [Not Recovered/Not Resolved]
  - Spinal column stenosis [Not Recovered/Not Resolved]
